FAERS Safety Report 7746684-1 (Version None)
Quarter: 2011Q3

REPORT INFORMATION
  Report Type: 
  Country: None (occurrence: None)
  Receive Date: 20110908
  Receipt Date: 20110906
  Transmission Date: 20111222
  Serious: Yes (Hospitalization)
  Sender: FDA-Public Use
  Company Number: SP03328

PATIENT
  Age: 60 Year
  Sex: Female

DRUGS (17)
  1. PROPOLIS [Concomitant]
  2. PLAQUENIL [Concomitant]
  3. OSMOPREP [Suspect]
     Indication: CONSTIPATION
     Dosage: ORAL
     Route: 048
     Dates: start: 20101101, end: 20101101
  4. OMEPRAZOLE [Concomitant]
  5. LAXATIVES [Concomitant]
  6. PREPACOL [Suspect]
     Indication: CONSTIPATION
     Dosage: ORAL
     Route: 048
     Dates: start: 20100101
  7. FORTRANS [Concomitant]
  8. IMOVANE [Concomitant]
  9. LANSOPRAZOLE [Concomitant]
  10. LEVOTHYROXINE SODIUM [Concomitant]
  11. ALPRAZOLAM [Concomitant]
  12. FLEET PHOSPHO-SODA [Suspect]
     Indication: CONSTIPATION
     Dates: start: 20100101
  13. NIFEDIPINE [Concomitant]
  14. IRBESARTAN AND HYDROCHLOROTHIAZIDE [Concomitant]
  15. ATHYMIL [Concomitant]
  16. ESCITALOPRAM OXALATE [Concomitant]
  17. ACETAMINOPHEN [Concomitant]

REACTIONS (8)
  - SUBILEUS [None]
  - TUBULOINTERSTITIAL NEPHRITIS [None]
  - DIARRHOEA [None]
  - CONTRAINDICATION TO MEDICAL TREATMENT [None]
  - INTENTIONAL DRUG MISUSE [None]
  - NEPHROCALCINOSIS [None]
  - ANAEMIA [None]
  - RENAL FAILURE CHRONIC [None]
